FAERS Safety Report 6529472-3 (Version None)
Quarter: 2010Q1

REPORT INFORMATION
  Report Type: 
  Country: None (occurrence: None)
  Receive Date: 20100107
  Receipt Date: 20091230
  Transmission Date: 20100710
  Serious: Yes (Hospitalization, Other)
  Sender: FDA-Public Use
  Company Number: US-AMGEN-QUU372017

PATIENT
  Sex: Male

DRUGS (10)
  1. ENBREL [Suspect]
     Indication: PSORIASIS
     Route: 058
     Dates: start: 20080114, end: 20091020
  2. ENBREL [Suspect]
     Indication: PSORIATIC ARTHROPATHY
  3. ENBREL [Suspect]
     Indication: ANKYLOSING SPONDYLITIS
  4. CLOBETASOL PROPIONATE [Concomitant]
     Route: 061
  5. CELEBREX [Concomitant]
     Route: 048
  6. CRESTOR [Concomitant]
     Route: 048
  7. TRICOR [Concomitant]
     Route: 048
  8. PRILOSEC [Concomitant]
     Route: 048
  9. ZESTORETIC [Concomitant]
     Dates: end: 20090701
  10. CLARITHROMYCIN [Concomitant]
     Dates: end: 20090701

REACTIONS (10)
  - ARTHRITIS [None]
  - BLOOD CREATINE PHOSPHOKINASE INCREASED [None]
  - FATIGUE [None]
  - LYMPHOCYTIC HYPOPHYSITIS [None]
  - MUSCLE STRAIN [None]
  - PSORIASIS [None]
  - SINUS CONGESTION [None]
  - SINUS HEADACHE [None]
  - SINUSITIS [None]
  - TREMOR [None]
